FAERS Safety Report 9282966 (Version 1)
Quarter: 2013Q2

REPORT INFORMATION
  Report Type: Spontaneous
  Country: US (occurrence: US)
  Receive Date: 20130510
  Receipt Date: 20130510
  Transmission Date: 20140414
  Serious: No
  Sender: FDA-Public Use
  Company Number: US-GLAXOSMITHKLINE-A0904104A

PATIENT
  Age: 80 Year
  Sex: Female

DRUGS (15)
  1. TYKERB [Suspect]
     Indication: BREAST CANCER
     Dosage: 5TAB PER DAY
     Route: 048
     Dates: start: 200704
  2. ACIPHEX [Concomitant]
  3. HERCEPTIN [Concomitant]
  4. NAVELBINE [Concomitant]
  5. XANAX [Concomitant]
  6. MELATONIN [Concomitant]
  7. LUCENTIS [Concomitant]
  8. ULCER MEDICATION [Concomitant]
  9. ASPIRIN [Concomitant]
  10. VITAMIN B12 [Concomitant]
  11. BIOTIN [Concomitant]
  12. VITAMIN D [Concomitant]
  13. SUPPLEMENT [Concomitant]
  14. UNSPECIFIED MEDICATION [Concomitant]
  15. QUININE [Concomitant]

REACTIONS (1)
  - Muscle spasms [Not Recovered/Not Resolved]
